FAERS Safety Report 17675506 (Version 1)
Quarter: 2020Q2

REPORT INFORMATION
  Report Type: Spontaneous
  Country: US (occurrence: US)
  Receive Date: 20200416
  Receipt Date: 20200416
  Transmission Date: 20200714
  Serious: No
  Sender: FDA-Public Use
  Company Number: None

PATIENT
  Age: 63 Year
  Sex: Female
  Weight: 59.49 kg

DRUGS (10)
  1. CAPECITABINE (NEW) [Concomitant]
  2. VITAMIN C [Concomitant]
     Active Substance: ASCORBIC ACID
  3. PROCHLORPERAZINE. [Concomitant]
     Active Substance: PROCHLORPERAZINE
  4. FULVESTRANT. [Concomitant]
     Active Substance: FULVESTRANT
  5. LOPERAMIDE [Concomitant]
     Active Substance: LOPERAMIDE
  6. HCTZ [Concomitant]
     Active Substance: HYDROCHLOROTHIAZIDE
  7. CALCIUM CARBONARTE [Concomitant]
  8. RESTASIS [Concomitant]
     Active Substance: CYCLOSPORINE
  9. IBRANCE [Suspect]
     Active Substance: PALBOCICLIB
     Indication: BREAST CANCER
     Route: 048
     Dates: start: 20190719, end: 20200416
  10. IBRANCE [Concomitant]
     Active Substance: PALBOCICLIB
     Dates: start: 20191224, end: 20200122

REACTIONS (1)
  - Disease progression [None]

NARRATIVE: CASE EVENT DATE: 20200416
